FAERS Safety Report 25969180 (Version 2)
Quarter: 2025Q4

REPORT INFORMATION
  Report Type: Spontaneous
  Country: US (occurrence: None)
  Receive Date: 20251028
  Receipt Date: 20251112
  Transmission Date: 20260118
  Serious: No
  Sender: INCYTE
  Company Number: US-INCYTE CORPORATION-2025IN011527

PATIENT
  Age: 84 Year
  Weight: 62.889 kg

DRUGS (2)
  1. JAKAFI [Suspect]
     Active Substance: RUXOLITINIB
     Indication: Polycythaemia vera
     Dosage: 10 MILLIGRAM, BID
  2. JAKAFI [Suspect]
     Active Substance: RUXOLITINIB
     Dosage: 10 MILLIGRAM, BID

REACTIONS (5)
  - Abdominal pain upper [Unknown]
  - Oropharyngeal discomfort [Unknown]
  - Sciatica [Unknown]
  - Headache [Unknown]
  - Constipation [Not Recovered/Not Resolved]
